FAERS Safety Report 10070428 (Version 1)
Quarter: 2014Q2

REPORT INFORMATION
  Report Type: Spontaneous
  Country: US (occurrence: None)
  Receive Date: 20140409
  Receipt Date: 20140409
  Transmission Date: 20141212
  Serious: Yes (Hospitalization)
  Sender: FDA-Public Use
  Company Number: None

PATIENT
  Sex: Male

DRUGS (1)
  1. XELJANZ 5MG BID PFIZER [Suspect]
     Indication: RHEUMATOID ARTHRITIS
     Dosage: 5MG, TWICE DAILY, ORAL
     Route: 048
     Dates: start: 20140201, end: 20140404

REACTIONS (1)
  - Pleural effusion [None]
